FAERS Safety Report 5596279-3 (Version None)
Quarter: 2007Q4

REPORT INFORMATION
  Report Type: 
  Country: None (occurrence: None)
  Receive Date: 20071218
  Receipt Date: 20070507
  Transmission Date: 20080405
  Serious: Yes (Other)
  Sender: FDA-Public Use
  Company Number: 2006027679

PATIENT
  Age: 52 Year
  Sex: Female

DRUGS (3)
  1. BEXTRA [Suspect]
     Indication: ARTHRALGIA
     Dosage: 20 MG (20 MG,1 IN 1 D)
  2. BEXTRA [Suspect]
     Indication: BACK PAIN
     Dosage: 20 MG (20 MG,1 IN 1 D)
  3. BEXTRA [Suspect]
     Indication: PATELLOFEMORAL PAIN SYNDROME
     Dosage: 20 MG (20 MG,1 IN 1 D)

REACTIONS (3)
  - CELLULITIS [None]
  - MYOCARDIAL INFARCTION [None]
  - NEURODERMATITIS [None]
